FAERS Safety Report 7215257-1 (Version None)
Quarter: 2011Q1

REPORT INFORMATION
  Report Type: 
  Country: None (occurrence: None)
  Receive Date: 20110107
  Receipt Date: 20110105
  Transmission Date: 20110831
  Serious: Yes (Hospitalization)
  Sender: FDA-Public Use
  Company Number: GB-AMGEN-KDC439662

PATIENT

DRUGS (19)
  1. GAVISCON [Concomitant]
     Dosage: 10 ML, PRN
     Dates: start: 20100701
  2. CODEINE [Concomitant]
     Dosage: 60 MG, QID
     Dates: start: 20100711
  3. EPIRUBICIN [Suspect]
     Dosage: UNK UNK, UNK
     Dates: start: 20100311
  4. CO-AMOXICLAV                       /00756801/ [Concomitant]
     Dosage: 625 MG, TID
     Dates: start: 20100712
  5. DEXAMETHASONE [Concomitant]
     Dosage: 4 MG, BID
     Dates: start: 20100511
  6. METOCLOPRAMIDE [Concomitant]
     Dosage: 10 MG, TID
     Dates: start: 20100501
  7. AMITRIPTYLINE [Concomitant]
  8. DOCUSATE [Concomitant]
     Dosage: 200 MG, BID
  9. LORAZEPAM [Concomitant]
     Dosage: 1 MG, QD
     Route: 048
     Dates: start: 20100701
  10. HYDROCORTISONE [Concomitant]
     Dosage: UNK UNK, BID
     Route: 061
     Dates: start: 20100712
  11. CHLORPHENAMINE [Concomitant]
     Dosage: 4 MG, QID
     Route: 048
     Dates: start: 20100701
  12. ORAMORPH SR [Concomitant]
     Dosage: UNK UNK, PRN
     Dates: start: 20100711
  13. PANITUMUMAB [Suspect]
     Indication: GASTROOESOPHAGEAL CANCER
     Dosage: UNK UNK, UNK
     Dates: start: 20100311
  14. OXALIPLATIN [Suspect]
     Dosage: UNK UNK, UNK
     Dates: start: 20100311
  15. CAPECITABINE [Suspect]
     Dosage: UNK UNK, UNK
     Dates: start: 20100311, end: 20100908
  16. ACETAMINOPHEN [Concomitant]
     Dosage: 1 G, QD
     Route: 048
     Dates: start: 20100701
  17. LANSOPRAZOLE [Concomitant]
     Dosage: 30 MG, QD
  18. MOVICOL [Concomitant]
  19. TEMAZEPAM [Concomitant]
     Dosage: 10 MG, QD

REACTIONS (1)
  - LUNG INFECTION [None]
